FAERS Safety Report 5162035-3 (Version None)
Quarter: 2006Q4

REPORT INFORMATION
  Report Type: 
  Country: None (occurrence: None)
  Receive Date: 20061121
  Receipt Date: 20061108
  Transmission Date: 20070319
  Serious: Yes (Hospitalization)
  Sender: FDA-Public Use
  Company Number: PAR_1096_2006

PATIENT
  Age: 42 Year

DRUGS (4)
  1. IBUPROFEN [Suspect]
     Dosage: 6000 MG ONCE PO
     Route: 048
  2. MICARDIS [Suspect]
     Dosage: 640 MG ONCE PO
     Route: 048
  3. DICLOFENAC SODIUM [Suspect]
     Dosage: 500 MG ONCE PO
     Route: 048
  4. HARD LIQUOR [Suspect]
     Dosage: 1 DF ONCE PO
     Route: 048

REACTIONS (1)
  - SUICIDE ATTEMPT [None]
